FAERS Safety Report 23555267 (Version 3)
Quarter: 2024Q2

REPORT INFORMATION
  Report Type: Spontaneous
  Country: DE (occurrence: DE)
  Receive Date: 20240222
  Receipt Date: 20240405
  Transmission Date: 20240716
  Serious: Yes (Life-Threatening, Hospitalization, Other)
  Sender: FDA-Public Use
  Company Number: DE-PFIZER INC-PV202400020817

PATIENT
  Age: 43 Year
  Sex: Female
  Weight: 61 kg

DRUGS (8)
  1. LEVETIRACETAM [Suspect]
     Active Substance: LEVETIRACETAM
     Indication: Metastases to central nervous system
     Dosage: 2000 MILLIGRAM, QD (1000 MG, 2X/DAY)
     Route: 065
     Dates: start: 202110
  2. TRASTUZUMAB [Suspect]
     Active Substance: TRASTUZUMAB
     Indication: Breast cancer
     Dosage: 6 MILLIGRAM/KILOGRAM, Q3W
     Route: 042
     Dates: start: 20230620, end: 20240130
  3. TRASTUZUMAB [Suspect]
     Active Substance: TRASTUZUMAB
     Indication: Breast cancer metastatic
  4. TUKYSA [Suspect]
     Active Substance: TUCATINIB
     Indication: Breast cancer
     Dosage: 600 MILLIGRAM, QD (300 MG, 2X/DAY)
     Route: 048
     Dates: start: 20231106, end: 20240202
  5. TUKYSA [Suspect]
     Active Substance: TUCATINIB
     Indication: Breast cancer metastatic
  6. CAPECITABINE [Suspect]
     Active Substance: CAPECITABINE
     Indication: Breast cancer
     Dosage: 3300 MILLIGRAM, QD (1650 MG, 2X/DAY)
     Route: 065
     Dates: start: 20231106, end: 20240202
  7. PANTOPRAZOLE [Concomitant]
     Active Substance: PANTOPRAZOLE
     Dosage: 20 MILLIGRAM, QD (20 MG, 1X/DAY)
     Route: 065
  8. GRANISETRONE [Concomitant]
     Indication: Nausea
     Dosage: 3.1 MILLIGRAM, QD (3.1 MG / 24HRS, EVERY 5 DAYS, DURING CAPECITABINE INTAKE)
     Route: 065
     Dates: start: 202311

REACTIONS (5)
  - Ventricular fibrillation [Recovered/Resolved]
  - Cardiac arrest [Recovered/Resolved]
  - Circulatory collapse [Recovered/Resolved]
  - Ejection fraction decreased [Not Recovered/Not Resolved]
  - Psychological trauma [Not Recovered/Not Resolved]

NARRATIVE: CASE EVENT DATE: 20240202
